FAERS Safety Report 16992214 (Version 1)
Quarter: 2019Q4

REPORT INFORMATION
  Report Type: Spontaneous
  Country: UG (occurrence: UG)
  Receive Date: 20190920
  Receipt Date: 20190920
  Transmission Date: 20200122
  Serious: Yes (Hospitalization)
  Sender: FDA-Public Use
  Company Number: None

PATIENT
  Age: 63 Year
  Sex: Male

DRUGS (1)
  1. ALLOPURINOL. [Suspect]
     Active Substance: ALLOPURINOL
     Indication: GOUT
     Route: 048
     Dates: start: 20190719, end: 20190909

REACTIONS (5)
  - Diarrhoea [None]
  - Tubulointerstitial nephritis [None]
  - Drug reaction with eosinophilia and systemic symptoms [None]
  - Hepatic enzyme increased [None]
  - Haematuria [None]

NARRATIVE: CASE EVENT DATE: 20190906
